FAERS Safety Report 7112901-4 (Version None)
Quarter: 2010Q4

REPORT INFORMATION
  Report Type: 
  Country: None (occurrence: None)
  Receive Date: 20101119
  Receipt Date: 20100505
  Transmission Date: 20110411
  Serious: No
  Sender: FDA-Public Use
  Company Number: US-BRISTOL-MYERS SQUIBB COMPANY-15091523

PATIENT
  Age: 74 Year
  Sex: Female
  Weight: 83 kg

DRUGS (3)
  1. AVALIDE [Suspect]
     Indication: HYPERTENSION
     Dosage: TAKEN FOR OVER ONE YEAR
  2. LIPITOR [Concomitant]
  3. FOSAMAX [Concomitant]

REACTIONS (1)
  - OEDEMA PERIPHERAL [None]
